FAERS Safety Report 16410789 (Version 3)
Quarter: 2022Q1

REPORT INFORMATION
  Report Type: Spontaneous
  Country: GB (occurrence: GB)
  Receive Date: 20190610
  Receipt Date: 20220107
  Transmission Date: 20220423
  Serious: Yes (Other)
  Sender: FDA-Public Use
  Company Number: GB-GLAXOSMITHKLINE-GB2018GSK085111

PATIENT
  Age: 51 Year
  Sex: Female

DRUGS (11)
  1. DOMPERIDONE [Suspect]
     Active Substance: DOMPERIDONE
     Indication: Product used for unknown indication
     Route: 065
  2. SPORANOX [Interacting]
     Active Substance: ITRACONAZOLE
     Indication: Product used for unknown indication
     Route: 048
  3. LEVOTHYROXINE [Interacting]
     Active Substance: LEVOTHYROXINE
     Indication: Product used for unknown indication
     Route: 065
  4. PREDNISOLONE [Interacting]
     Active Substance: PREDNISOLONE
     Indication: Product used for unknown indication
     Route: 065
  5. THEOPHYLLINE ANHYDROUS [Interacting]
     Active Substance: THEOPHYLLINE ANHYDROUS
     Indication: Product used for unknown indication
     Route: 065
  6. CREON [Interacting]
     Active Substance: PANCRELIPASE AMYLASE\PANCRELIPASE LIPASE\PANCRELIPASE PROTEASE
     Indication: Product used for unknown indication
     Route: 065
  7. CARBOCYSTEINE [Interacting]
     Active Substance: CARBOCYSTEINE
     Indication: Product used for unknown indication
     Route: 065
  8. HYDROXYCHLOROQUINE [Interacting]
     Active Substance: HYDROXYCHLOROQUINE
     Indication: Product used for unknown indication
     Route: 065
  9. RISEDRONATE SODIUM [Interacting]
     Active Substance: RISEDRONATE SODIUM
     Indication: Product used for unknown indication
     Route: 065
  10. LANSOPRAZOLE [Interacting]
     Active Substance: LANSOPRAZOLE
     Indication: Product used for unknown indication
     Route: 065
  11. PROPRANOLOL HYDROCHLORIDE [Concomitant]
     Active Substance: PROPRANOLOL HYDROCHLORIDE
     Route: 065

REACTIONS (10)
  - Cushing^s syndrome [Unknown]
  - Adrenal insufficiency [Unknown]
  - Adrenal suppression [Unknown]
  - Adrenal insufficiency [Not Recovered/Not Resolved]
  - Hyperprolactinaemia [Unknown]
  - Myopathy [Unknown]
  - Galactorrhoea [Unknown]
  - Blood prolactin increased [Unknown]
  - Drug interaction [Unknown]
  - Orthostatic hypotension [Unknown]
